FAERS Safety Report 14186873 (Version 1)
Quarter: 2017Q4

REPORT INFORMATION
  Report Type: Spontaneous
  Country: US (occurrence: None)
  Receive Date: 20171113
  Receipt Date: 20171113
  Transmission Date: 20180321
  Serious: No
  Sender: FDA-Public Use
  Company Number: None

PATIENT
  Age: 36 Year
  Sex: Female
  Weight: 81.65 kg

DRUGS (8)
  1. PROPANALOL [Concomitant]
  2. BUPROPION. [Concomitant]
     Active Substance: BUPROPION
  3. MIRENA [Suspect]
     Active Substance: LEVONORGESTREL
     Dates: start: 20150921, end: 20171113
  4. PROZAC [Concomitant]
     Active Substance: FLUOXETINE HYDROCHLORIDE
  5. VALCYCLOVIERE [Concomitant]
  6. INDERAL [Concomitant]
     Active Substance: PROPRANOLOL HYDROCHLORIDE
  7. ZOMIG [Concomitant]
     Active Substance: ZOLMITRIPTAN
  8. MAGNESIUM SUPPLEMENTS [Concomitant]
     Active Substance: MAGNESIUM

REACTIONS (9)
  - Hypertension [None]
  - Anxiety [None]
  - Migraine [None]
  - Depression [None]
  - Hyperthyroidism [None]
  - Panic attack [None]
  - Tinnitus [None]
  - Abdominal distension [None]
  - Affective disorder [None]
